FAERS Safety Report 12084661 (Version 1)
Quarter: 2016Q1

REPORT INFORMATION
  Report Type: Spontaneous
  Country: US (occurrence: US)
  Receive Date: 20160217
  Receipt Date: 20160217
  Transmission Date: 20160526
  Serious: No
  Sender: FDA-Public Use
  Company Number: GXBR2015US001328

PATIENT
  Sex: Male

DRUGS (2)
  1. NYSTATIN. [Suspect]
     Active Substance: NYSTATIN
     Indication: SKIN PAPILLOMA
  2. NYSTATIN. [Suspect]
     Active Substance: NYSTATIN
     Indication: SKIN INFECTION
     Dosage: UNK DF, UNK
     Route: 061

REACTIONS (2)
  - Off label use [Unknown]
  - Drug ineffective [Unknown]
